FAERS Safety Report 6762561-7 (Version None)
Quarter: 2010Q2

REPORT INFORMATION
  Report Type: 
  Country: None (occurrence: None)
  Receive Date: 20100609
  Receipt Date: 20100528
  Transmission Date: 20101027
  Serious: Yes (Other)
  Sender: FDA-Public Use
  Company Number: ES-PFIZER INC-2010067132

PATIENT
  Age: 57 Year
  Sex: Female

DRUGS (3)
  1. ZYVOXID [Suspect]
     Indication: OSTEOMYELITIS
     Dosage: 600 MG, 2X/DAY
     Route: 048
     Dates: start: 20091020, end: 20100123
  2. RIFALDIN [Concomitant]
     Indication: OSTEOMYELITIS
     Dosage: 600 MG, 1X/DAY
  3. LEVOTHYROXINE SODIUM [Concomitant]
     Indication: HYPOTHYROIDISM
     Dosage: 75 UG, 1X/DAY
     Route: 048

REACTIONS (4)
  - OPEN ANGLE GLAUCOMA [None]
  - PLATELET COUNT DECREASED [None]
  - TINEA PEDIS [None]
  - WHITE BLOOD CELL COUNT DECREASED [None]
